FAERS Safety Report 4417745-X (Version None)
Quarter: 2004Q3

REPORT INFORMATION
  Report Type: 
  Country: None (occurrence: None)
  Receive Date: 20040803
  Receipt Date: 20030217
  Transmission Date: 20050211
  Serious: Yes (Hospitalization)
  Sender: FDA-Public Use
  Company Number: MEST00399002435

PATIENT
  Age: 43 Year
  Sex: Male

DRUGS (1)
  1. ROWASA [Suspect]
     Indication: COLITIS ULCERATIVE
     Dosage: QD PO
     Route: 048
     Dates: start: 19980701, end: 19990813

REACTIONS (3)
  - NEPHRITIS INTERSTITIAL [None]
  - RENAL FAILURE ACUTE [None]
  - RENAL TUBULAR DISORDER [None]
